FAERS Safety Report 9299152 (Version 2)
Quarter: 2013Q3

REPORT INFORMATION
  Report Type: Spontaneous
  Country: DE (occurrence: DE)
  Receive Date: 20130520
  Receipt Date: 20130819
  Transmission Date: 20140515
  Serious: Yes (Hospitalization)
  Sender: FDA-Public Use
  Company Number: DE-TEVA-403210GER

PATIENT
  Sex: Female

DRUGS (14)
  1. DOXORUBICIN [Suspect]
     Indication: B-CELL LYMPHOMA
     Dosage: DAY 1
     Route: 042
     Dates: start: 20130226
  2. PREDNISONE [Suspect]
     Indication: B-CELL LYMPHOMA
     Dosage: DAY 1-5
     Route: 048
     Dates: start: 20130226
  3. CYCLOPHOSPHAMIDE [Suspect]
     Indication: B-CELL LYMPHOMA
     Dosage: DAY 1
     Route: 042
     Dates: start: 20130226
  4. RITUXIMAB [Suspect]
     Indication: B-CELL LYMPHOMA
     Dosage: DAY 1
     Route: 042
     Dates: start: 20130219
  5. PEGFILGRASTIM [Suspect]
     Indication: B-CELL LYMPHOMA
     Dosage: DAY 4
     Route: 058
     Dates: start: 20130301
  6. VINCRISTINE LIPOSOMAL [Suspect]
     Indication: B-CELL LYMPHOMA
     Dosage: DAY 1
     Route: 042
     Dates: start: 20130226
  7. CLEMASTINE [Concomitant]
     Indication: PROPHYLAXIS
     Dosage: DAY 1
     Route: 042
     Dates: start: 20130219
  8. CIPROFLOXACIN [Concomitant]
     Indication: PROPHYLAXIS
     Dosage: DAY 6
     Route: 048
     Dates: start: 20130303
  9. AMPHOTERICIN B [Concomitant]
     Indication: PROPHYLAXIS
     Dosage: 1 MILLIGRAM DAILY;
     Route: 048
     Dates: start: 20130304
  10. SULFAMETHOXAZOLE/TRIMETHOPRIM [Concomitant]
     Indication: PROPHYLAXIS
     Dosage: 1 UNIT EVERY MONDAY, WEDNESDAY AND FRIDAY
     Route: 048
     Dates: start: 20130225
  11. ACICLOVIR [Concomitant]
     Indication: PROPHYLAXIS
     Dosage: DAY 1
     Route: 048
     Dates: start: 20130226
  12. PARACETAMOL [Concomitant]
     Indication: PROPHYLAXIS
     Dosage: DAY 1
     Route: 048
     Dates: start: 20130219
  13. MESNA [Concomitant]
     Indication: PROPHYLAXIS
     Dosage: DAY 1
     Route: 042
     Dates: start: 20130226
  14. MESNA [Concomitant]
     Dosage: DAY 1
     Route: 048
     Dates: start: 20130226

REACTIONS (1)
  - Blood creatinine increased [Recovered/Resolved]
